FAERS Safety Report 5191792-5 (Version None)
Quarter: 2006Q4

REPORT INFORMATION
  Report Type: 
  Country: None (occurrence: None)
  Receive Date: 20061226
  Receipt Date: 20061205
  Transmission Date: 20070319
  Serious: Yes (Hospitalization)
  Sender: FDA-Public Use
  Company Number: JP-ELI_LILLY_AND_COMPANY-JP200612000970

PATIENT
  Sex: Male

DRUGS (2)
  1. GEMZAR [Suspect]
     Indication: TRANSITIONAL CELL CANCER OF THE RENAL PELVIS AND URETER
     Dosage: 1000 MG/M2, OTHER
     Route: 042
     Dates: start: 20060418, end: 20060511
  2. PACLITAXEL [Concomitant]
     Indication: TRANSITIONAL CELL CANCER OF THE RENAL PELVIS AND URETER
     Dosage: 180 MG/M2, OTHER
     Route: 042
     Dates: start: 20060418, end: 20060101

REACTIONS (6)
  - ARTHRALGIA [None]
  - CHILLS [None]
  - HYPOAESTHESIA [None]
  - PHARYNGOLARYNGEAL PAIN [None]
  - PYREXIA [None]
  - URTICARIA GENERALISED [None]
